FAERS Safety Report 8757947 (Version 1)
Quarter: 2012Q4

REPORT INFORMATION
  Report Type: 
  Country: US (occurrence: US)
  Receive Date: 20120828
  Receipt Date: 20120828
  Transmission Date: 20130627
  Serious: No
  Sender: FDA-Public Use
  Company Number: US-PFIZER INC-2012208725

PATIENT
  Age: 33 Year
  Sex: Female

DRUGS (1)
  1. DEPO-MEDROL [Suspect]
     Indication: NERVE BLOCK
     Dosage: 40 mg/ml, single
     Route: 030
     Dates: start: 20120531, end: 20120531

REACTIONS (1)
  - Pruritus generalised [Unknown]
